FAERS Safety Report 15017984 (Version 1)
Quarter: 2018Q2

REPORT INFORMATION
  Report Type: Spontaneous
  Country: US (occurrence: US)
  Receive Date: 20180615
  Receipt Date: 20180615
  Transmission Date: 20180711
  Serious: Yes (Hospitalization)
  Sender: FDA-Public Use
  Company Number: US-PFIZER INC-2017488968

PATIENT
  Age: 76 Year
  Sex: Female
  Weight: 77.55 kg

DRUGS (2)
  1. IBRANCE [Suspect]
     Active Substance: PALBOCICLIB
     Dosage: 125 MG, CYCLIC, (FOOD FOR 21 DAYS AND THEN OFF FOR 7 DAYS)
     Route: 048
     Dates: start: 201608
  2. IBRANCE [Suspect]
     Active Substance: PALBOCICLIB
     Indication: BREAST CANCER METASTATIC
     Dosage: 125 MG, CYCLIC (TAKE WITH FOOD DAILY FOR X 3 OUT OF 4 WEEKS/21 DAYS AND THEN OFF FOR 7 DAYS)
     Dates: start: 20170703

REACTIONS (11)
  - Immune system disorder [Unknown]
  - Drug dose omission [Recovered/Resolved]
  - Cough [Unknown]
  - Limb discomfort [Recovered/Resolved]
  - Stress [Unknown]
  - Sinus headache [Unknown]
  - Sinus disorder [Not Recovered/Not Resolved]
  - Sneezing [Unknown]
  - Lacrimation increased [Unknown]
  - Hypersensitivity [Unknown]
  - Respiratory tract congestion [Unknown]

NARRATIVE: CASE EVENT DATE: 20180605
